FAERS Safety Report 24659143 (Version 1)
Quarter: 2024Q4

REPORT INFORMATION
  Report Type: Spontaneous
  Country: JP (occurrence: JP)
  Receive Date: 20241125
  Receipt Date: 20241125
  Transmission Date: 20250115
  Serious: Yes (Other)
  Sender: EISAI
  Company Number: JP-Eisai-202410900_LEN-RCC_P_1

PATIENT
  Sex: Female

DRUGS (44)
  1. LENVATINIB [Suspect]
     Active Substance: LENVATINIB
     Indication: Thyroid cancer
     Dosage: FREQUENCY UNKNOWN
     Route: 048
     Dates: start: 20210823, end: 20210826
  2. LENVATINIB [Suspect]
     Active Substance: LENVATINIB
     Dosage: FREQUENCY UNKNOWN
     Route: 048
     Dates: start: 2021, end: 2021
  3. LENVATINIB [Suspect]
     Active Substance: LENVATINIB
     Dosage: FREQUENCY UNKNOWN
     Route: 048
     Dates: start: 2021, end: 20210829
  4. LENVATINIB [Suspect]
     Active Substance: LENVATINIB
     Dosage: FREQUENCY UNKNOWN
     Route: 048
     Dates: start: 20210830, end: 20210926
  5. LENVATINIB [Suspect]
     Active Substance: LENVATINIB
     Dosage: FREQUENCY UNKNOWN
     Route: 048
     Dates: start: 20210927, end: 20211008
  6. LENVATINIB [Suspect]
     Active Substance: LENVATINIB
     Dosage: FREQUENCY UNKNOWN
     Route: 048
     Dates: start: 20211009
  7. LENVATINIB [Suspect]
     Active Substance: LENVATINIB
     Dosage: FREQUENCY UNKNOWN
     Route: 048
     Dates: start: 20220214, end: 202206
  8. LENVATINIB [Suspect]
     Active Substance: LENVATINIB
     Dosage: FREQUENCY UNKNOWN
     Route: 048
     Dates: start: 20220802
  9. LENVATINIB [Suspect]
     Active Substance: LENVATINIB
     Dosage: FREQUENCY UNKNOWN
     Route: 048
     Dates: start: 20220810
  10. LENVATINIB [Suspect]
     Active Substance: LENVATINIB
     Dosage: FREQUENCY UNKNOWN
     Route: 048
     Dates: start: 20220819
  11. LENVATINIB [Suspect]
     Active Substance: LENVATINIB
     Dosage: FREQUENCY UNKNOWN
     Route: 048
     Dates: start: 20220913, end: 20221017
  12. LENVATINIB [Suspect]
     Active Substance: LENVATINIB
     Dosage: 10MG 5 DAYS A WEEK AND 14MG 2 DAYS A WEEK
     Route: 048
     Dates: start: 2021, end: 2021
  13. LENVATINIB [Suspect]
     Active Substance: LENVATINIB
     Dosage: FREQUENCY UNKNOWN
     Route: 048
  14. DAYVIGO [Concomitant]
     Active Substance: LEMBOREXANT
     Dosage: AT THE TIME OF SLEEPLESSNESS
     Route: 048
     Dates: start: 20221209, end: 20230210
  15. KEYTRUDA [Concomitant]
     Active Substance: PEMBROLIZUMAB
     Indication: Thyroid cancer
     Dosage: FREQUENCY UNKNOWN
     Route: 041
     Dates: start: 20221201, end: 20230118
  16. OXINORM [Concomitant]
     Dosage: FREQUENCY UNKNOWN
     Route: 065
     Dates: start: 20201019
  17. OXINORM [Concomitant]
     Dosage: FREQUENCY UNKNOWN
     Route: 065
  18. OXYCONTIN [Concomitant]
     Active Substance: OXYCODONE HYDROCHLORIDE
     Dosage: FREQUENCY UNKNOWN
     Route: 065
     Dates: start: 20201019
  19. OXYCONTIN [Concomitant]
     Active Substance: OXYCODONE HYDROCHLORIDE
     Dosage: FREQUENCY UNKNOWN
     Route: 065
  20. LEVOTHYROXINE [Concomitant]
     Active Substance: LEVOTHYROXINE
     Dosage: DOSE AND FREQUENCY UNKNOWN
     Route: 065
     Dates: start: 201305, end: 201702
  21. LEVOTHYROXINE [Concomitant]
     Active Substance: LEVOTHYROXINE
     Dosage: DOSE AND FREQUENCY UNKNOWN
     Route: 065
     Dates: start: 202109
  22. LOXOPROFEN SODIUM [Concomitant]
     Active Substance: LOXOPROFEN SODIUM
     Dosage: DOSE AND FREQUENCY UNKNOWN
     Route: 065
     Dates: start: 202111
  23. DENOSUMAB [Concomitant]
     Active Substance: DENOSUMAB
     Dosage: DOSE AND FREQUENCY UNKNOWN
     Route: 065
     Dates: start: 202208, end: 202301
  24. IRBESARTAN [Concomitant]
     Active Substance: IRBESARTAN
     Dosage: DOSE AND FREQUENCY UNKNOWN
     Route: 065
     Dates: start: 20220830, end: 20221230
  25. AMLODIPINE [Concomitant]
     Active Substance: AMLODIPINE BESYLATE
     Dosage: DOSE AND FREQUENCY UNKNOWN
     Route: 065
     Dates: start: 20220830, end: 20221230
  26. LANSOPRAZOLE [Concomitant]
     Active Substance: LANSOPRAZOLE
     Dosage: DOSE AND FREQUENCY UNKNOWN
     Route: 065
     Dates: start: 202207, end: 202303
  27. MAGNESIUM OXIDE [Concomitant]
     Active Substance: MAGNESIUM OXIDE
     Dosage: DOSE AND FREQUENCY UNKNOWN
     Route: 065
     Dates: start: 202207, end: 202303
  28. NU-LOTAN [Concomitant]
     Active Substance: LOSARTAN POTASSIUM
     Route: 065
     Dates: start: 20210826, end: 20210827
  29. NAUZELIN [Concomitant]
     Active Substance: DOMPERIDONE
     Dosage: DOSE AND FREQUENCY UNKNOWN
     Route: 065
  30. LOPEMIN [Concomitant]
     Dosage: DOSE AND FREQUENCY UNKNOWN
     Route: 065
  31. ENSURE [Concomitant]
     Active Substance: AMINO ACIDS\DEXTROSE\ELECTROLYTES NOS\SOYBEAN OIL\VITAMINS
     Dosage: DOSE AND FREQUENCY UNKNOWN
     Route: 065
  32. RINDERON [Concomitant]
     Indication: Palmar-plantar erythrodysaesthesia syndrome
     Dosage: DOSE AND FREQUENCY UNKNOWN
     Route: 065
  33. HEPARINOID [Concomitant]
     Indication: Palmar-plantar erythrodysaesthesia syndrome
  34. MYSER [Concomitant]
     Indication: Palmar-plantar erythrodysaesthesia syndrome
     Dosage: DOSE AND FREQUENCY UNKNOWN
     Route: 065
  35. LEVOFLOXACIN [Concomitant]
     Active Substance: LEVOFLOXACIN
     Dosage: DOSE AND FREQUENCY UNKNOWN
     Route: 065
  36. UREA [Concomitant]
     Active Substance: UREA
     Dosage: DOSE AND FREQUENCY UNKNOWN
     Route: 065
  37. LEVOCETIRIZINE HYDROCHLORIDE [Concomitant]
     Active Substance: LEVOCETIRIZINE HYDROCHLORIDE
     Dosage: DOSE AND FREQUENCY UNKNOWN
     Route: 065
  38. DIPHENHYDRAMINE [Concomitant]
     Active Substance: DIPHENHYDRAMINE
     Dosage: DOSE AND FREQUENCY UNKNOWN
     Route: 065
  39. LASIX [Concomitant]
     Active Substance: FUROSEMIDE
     Dosage: DOSE AND FREQUENCY UNKNOWN
     Route: 065
     Dates: start: 20221213, end: 20230203
  40. QUETIAPINE [Concomitant]
     Active Substance: QUETIAPINE
     Dosage: DOSE AND FREQUENCY UNKNOWN
     Route: 065
     Dates: start: 20221207, end: 20221212
  41. MIROGABALIN BESYLATE [Concomitant]
     Active Substance: MIROGABALIN BESYLATE
     Dosage: DOSE AND FREQUENCY UNKNOWN
     Route: 065
     Dates: start: 20221011, end: 20221231
  42. RAMELTEON [Concomitant]
     Active Substance: RAMELTEON
     Dosage: DOSE AND FREQUENCY UNKNOWN
     Route: 065
  43. HALOPERIDOL [Concomitant]
     Active Substance: HALOPERIDOL
     Dosage: DOSE AND FREQUENCY UNKNOWN
     Route: 065
  44. ATARAX [Concomitant]
     Active Substance: HYDROXYZINE HYDROCHLORIDE
     Dosage: DOSE AND FREQUENCY UNKNOWN
     Route: 065

REACTIONS (16)
  - Pathological fracture [Unknown]
  - Palmar-plantar erythrodysaesthesia syndrome [Unknown]
  - Nausea [Recovering/Resolving]
  - Vomiting [Recovering/Resolving]
  - Diarrhoea [Recovering/Resolving]
  - Blood pressure increased [Recovering/Resolving]
  - White blood cell count increased [Unknown]
  - C-reactive protein increased [Unknown]
  - Haemoptysis [Unknown]
  - Pneumonia [Unknown]
  - Hepatic cyst [Unknown]
  - Proteinuria [Unknown]
  - Pruritus [Unknown]
  - Headache [Unknown]
  - Hypertension [Unknown]
  - Anal injury [Unknown]

NARRATIVE: CASE EVENT DATE: 20210801
